FAERS Safety Report 5013803-X (Version None)
Quarter: 2006Q2

REPORT INFORMATION
  Report Type: 
  Country: None (occurrence: None)
  Receive Date: 20060526
  Receipt Date: 20060526
  Transmission Date: 20061013
  Serious: Yes (Disabling, Other)
  Sender: FDA-Public Use
  Company Number: None

PATIENT
  Age: 53 Year
  Sex: Female
  Weight: 62.5964 kg

DRUGS (3)
  1. LEVAQUIN [Suspect]
     Indication: BRONCHITIS
     Dosage: 1 TABLET   DAILY  X 7 DAYS   ORAL
     Route: 048
     Dates: start: 20060509, end: 20060513
  2. NORVASC [Concomitant]
  3. ZYRTEC [Concomitant]

REACTIONS (5)
  - ARTHRALGIA [None]
  - DIFFICULTY IN WALKING [None]
  - DYSSTASIA [None]
  - JOINT STIFFNESS [None]
  - PAIN IN EXTREMITY [None]
